FAERS Safety Report 19188943 (Version 1)
Quarter: 2021Q2

REPORT INFORMATION
  Report Type: Spontaneous
  Country: US (occurrence: US)
  Receive Date: 20210427
  Receipt Date: 20210427
  Transmission Date: 20210717
  Serious: Yes (Hospitalization)
  Sender: FDA-Public Use
  Company Number: None

PATIENT
  Sex: Female

DRUGS (7)
  1. CALC ACETATE [Concomitant]
     Active Substance: CALCIUM ACETATE
  2. NIFEDIPINE. [Concomitant]
     Active Substance: NIFEDIPINE
  3. SPIRONOLACTONE. [Concomitant]
     Active Substance: SPIRONOLACTONE
  4. ENVARSUS XR [Suspect]
     Active Substance: TACROLIMUS
     Indication: CHRONIC KIDNEY DISEASE
     Route: 048
  5. ENVARSUS XR [Suspect]
     Active Substance: TACROLIMUS
     Indication: CHRONIC KIDNEY DISEASE
     Route: 048
  6. LABETALOL [Concomitant]
     Active Substance: LABETALOL\LABETALOL HYDROCHLORIDE
  7. ATORVASTATIN [Concomitant]
     Active Substance: ATORVASTATIN

REACTIONS (1)
  - Blood pressure abnormal [None]
